FAERS Safety Report 13551607 (Version 1)
Quarter: 2017Q2

REPORT INFORMATION
  Report Type: Spontaneous
  Country: DE (occurrence: DE)
  Receive Date: 20170516
  Receipt Date: 20170516
  Transmission Date: 20170830
  Serious: Yes (Other)
  Sender: FDA-Public Use
  Company Number: DE-MERCK KGAA-2020836

PATIENT
  Age: 77 Year
  Sex: Male

DRUGS (9)
  1. NOVOTHYROX [Suspect]
     Active Substance: LEVOTHYROXINE SODIUM
     Dates: start: 2017
  2. NOVOTHYROX [Suspect]
     Active Substance: LEVOTHYROXINE SODIUM
     Dates: end: 20170428
  3. METOHEXAL [Concomitant]
     Active Substance: METOPROLOL SUCCINATE
  4. ENALAPRIL [Concomitant]
     Active Substance: ENALAPRIL
  5. ISOKET [Concomitant]
     Active Substance: ISOSORBIDE DINITRATE
  6. NOVOTHYROX [Suspect]
     Active Substance: LEVOTHYROXINE SODIUM
     Indication: PRODUCT USED FOR UNKNOWN INDICATION
     Dates: start: 201611
  7. PHENPROCOUMON [Concomitant]
     Active Substance: PHENPROCOUMON
  8. ALLOPURINOL. [Concomitant]
     Active Substance: ALLOPURINOL
  9. PRAVASTATIN. [Concomitant]
     Active Substance: PRAVASTATIN

REACTIONS (2)
  - Chest pain [Unknown]
  - Aortic valve thickening [Unknown]

NARRATIVE: CASE EVENT DATE: 201611
